FAERS Safety Report 10969227 (Version 1)
Quarter: 2015Q1

REPORT INFORMATION
  Report Type: Spontaneous
  Country: US (occurrence: None)
  Receive Date: 20150226
  Receipt Date: 20150226
  Transmission Date: 20150721
  Serious: No
  Sender: FDA-Public Use
  Company Number: TPA2010A01447

PATIENT
  Age: 84 Year
  Sex: Female
  Weight: 68.49 kg

DRUGS (2)
  1. DIOVAN HCT (HYDROCHLOROTHIAZIDE, VALSARTAN) [Concomitant]
  2. ULORIC [Suspect]
     Active Substance: FEBUXOSTAT
     Indication: GOUT
     Route: 048
     Dates: start: 20100320, end: 20100323

REACTIONS (2)
  - Rash [None]
  - Urticaria [None]
